FAERS Safety Report 13921352 (Version 3)
Quarter: 2017Q4

REPORT INFORMATION
  Report Type: Spontaneous
  Country: US (occurrence: US)
  Receive Date: 20170830
  Receipt Date: 20171103
  Transmission Date: 20180320
  Serious: Yes (Other)
  Sender: FDA-Public Use
  Company Number: US-PFIZER INC-2017366806

PATIENT
  Age: 57 Year
  Sex: Female
  Weight: 52.15 kg

DRUGS (4)
  1. LYRICA [Suspect]
     Active Substance: PREGABALIN
     Indication: CENTRAL NERVOUS SYSTEM LESION
     Dosage: 150 MG, 2X/DAY, (FOR 7 DAYS)
     Route: 048
     Dates: start: 201707, end: 201708
  2. LYRICA [Suspect]
     Active Substance: PREGABALIN
     Indication: MIGRAINE
     Dosage: 75 MG, 2X/DAY, (FOR 1 WEEK)
     Route: 048
     Dates: start: 20170619
  3. CRESTOR [Concomitant]
     Active Substance: ROSUVASTATIN CALCIUM
     Dosage: 10 MG, UNK
  4. LYRICA [Suspect]
     Active Substance: PREGABALIN
     Indication: NEURALGIA
     Dosage: 75 MG, 2X/DAY
     Route: 048
     Dates: start: 20170614

REACTIONS (8)
  - Muscle tightness [Not Recovered/Not Resolved]
  - Somnolence [Recovered/Resolved]
  - Mastication disorder [Unknown]
  - Facial pain [Recovering/Resolving]
  - Trismus [Unknown]
  - Pain in jaw [Recovered/Resolved]
  - Joint stiffness [Unknown]
  - Temporomandibular joint syndrome [Unknown]

NARRATIVE: CASE EVENT DATE: 2017
